FAERS Safety Report 13012849 (Version 3)
Quarter: 2017Q1

REPORT INFORMATION
  Report Type: Spontaneous
  Country: ES (occurrence: ES)
  Receive Date: 20161209
  Receipt Date: 20170217
  Transmission Date: 20170428
  Serious: Yes (Death, Life-Threatening, Hospitalization)
  Sender: FDA-Public Use
  Company Number: ES-JNJFOC-20161206528

PATIENT
  Age: 56 Year
  Sex: Female

DRUGS (1)
  1. DARATUMUMAB [Suspect]
     Active Substance: DARATUMUMAB
     Indication: PLASMA CELL MYELOMA
     Route: 042
     Dates: start: 201611

REACTIONS (5)
  - Platelet count decreased [Unknown]
  - Disease progression [Fatal]
  - Demyelinating polyneuropathy [Fatal]
  - Terminal state [Unknown]
  - Guillain-Barre syndrome [Unknown]
